FAERS Safety Report 6376429-1 (Version None)
Quarter: 2009Q3

REPORT INFORMATION
  Report Type: 
  Country: None (occurrence: None)
  Receive Date: 20090925
  Receipt Date: 20090918
  Transmission Date: 20100115
  Serious: Yes (Other)
  Sender: FDA-Public Use
  Company Number: CA-JNJFOC-20090905925

PATIENT
  Sex: Female
  Weight: 77 kg

DRUGS (4)
  1. ORTHO EVRA [Suspect]
     Indication: DRUG USE FOR UNKNOWN INDICATION
     Route: 062
  2. IRON [Concomitant]
     Route: 065
  3. VENTOLIN [Concomitant]
     Indication: ASTHMA
     Route: 065
  4. VITAMIN TAB [Concomitant]
     Route: 065

REACTIONS (4)
  - ASTHMA [None]
  - DRUG EXPOSURE DURING PREGNANCY [None]
  - PREGNANCY WITH CONTRACEPTIVE PATCH [None]
  - SINUS DISORDER [None]
